FAERS Safety Report 8366271-4 (Version None)
Quarter: 2012Q2

REPORT INFORMATION
  Report Type: 
  Country: None (occurrence: None)
  Receive Date: 20120517
  Receipt Date: 20120514
  Transmission Date: 20120825
  Serious: Yes (Other)
  Sender: FDA-Public Use
  Company Number: PHEH2012US009894

PATIENT
  Sex: Female

DRUGS (7)
  1. ULTRAM [Concomitant]
     Dosage: UNK UKN, UNK
  2. GILENYA [Suspect]
     Indication: MULTIPLE SCLEROSIS
     Dosage: 0.5 MG, QD
     Route: 048
     Dates: start: 20111201, end: 20120101
  3. NEURONTIN [Concomitant]
     Dosage: UNK UKN, UNK
  4. SYNTHROID [Concomitant]
     Dosage: UNK UKN, UNK
  5. ASPIRIN [Concomitant]
     Dosage: UNK UKN, UNK
  6. EVISTA [Concomitant]
     Dosage: UNK UKN, UNK
  7. PRILOSEC [Concomitant]
     Dosage: UNK UKN, UNK

REACTIONS (3)
  - MACULAR OEDEMA [None]
  - BLINDNESS [None]
  - OCULAR VASCULAR DISORDER [None]
